FAERS Safety Report 10889208 (Version 2)
Quarter: 2015Q1

REPORT INFORMATION
  Report Type: Spontaneous
  Country: JP (occurrence: JP)
  Receive Date: 20150305
  Receipt Date: 20150318
  Transmission Date: 20150721
  Serious: No
  Sender: FDA-Public Use
  Company Number: JP-PFIZER INC-2015052821

PATIENT
  Age: 71 Year
  Sex: Female

DRUGS (9)
  1. LYRICA [Concomitant]
     Active Substance: PREGABALIN
     Dosage: UNK
     Dates: start: 201412, end: 20150128
  2. ZITHROMAC [Suspect]
     Active Substance: AZITHROMYCIN DIHYDRATE
     Indication: BRONCHITIS
     Dosage: 500 MG, DAILY
     Route: 048
  3. DALACIN [Concomitant]
     Active Substance: CLINDAMYCIN\CLINDAMYCIN PHOSPHATE
     Dosage: 600 MG, DAILY
  4. ECARD COMBINATION [Concomitant]
     Indication: HYPERTENSION
     Dosage: 1 UNK, UNK
  5. NORVASC [Concomitant]
     Active Substance: AMLODIPINE BESYLATE
     Indication: HYPERTENSION
     Dosage: 5 MG, DAILY
  6. AMBROXOL [Concomitant]
     Active Substance: AMBROXOL
     Dosage: 45 MG, DAILY
  7. ALESION [Concomitant]
     Active Substance: EPINASTINE HYDROCHLORIDE
     Dosage: 20 MG, DAILY
  8. LIPOVAS ^BANYU^ [Concomitant]
     Indication: HYPERLIPIDAEMIA
     Dosage: 5 MG, 1X/DAY
  9. NORMAL SALINE [Concomitant]
     Active Substance: SODIUM CHLORIDE
     Dosage: 100 UNK, UNK

REACTIONS (3)
  - Vomiting [Unknown]
  - Face oedema [Unknown]
  - Diarrhoea [Unknown]

NARRATIVE: CASE EVENT DATE: 20150129
